FAERS Safety Report 16234629 (Version 2)
Quarter: 2019Q2

REPORT INFORMATION
  Report Type: Report from Study
  Country: RO (occurrence: RO)
  Receive Date: 20190424
  Receipt Date: 20190510
  Transmission Date: 20190711
  Serious: Yes (Hospitalization, Other)
  Sender: FDA-Public Use
  Company Number: RO-GILEAD-2019-0403570

PATIENT
  Age: 76 Year
  Sex: Female

DRUGS (11)
  1. NORMIX [Concomitant]
     Active Substance: RIFAXIMIN
  2. LACTULOSE. [Concomitant]
     Active Substance: LACTULOSE
  3. MILGAMMA [BENFOTIAMINE;CYANOCOBALAMIN;PYRIDOXINE HYDROCHLORIDE] [Concomitant]
  4. EMANERA [Concomitant]
     Active Substance: ESOMEPRAZOLE MAGNESIUM
  5. LEDIPASVIR/SOFOSBUVIR [Suspect]
     Active Substance: LEDIPASVIR\SOFOSBUVIR
     Indication: HEPATITIS C
     Dosage: 1 DOSAGE FORM, QD
     Route: 048
     Dates: start: 20181109, end: 20190131
  6. LEDIPASVIR/SOFOSBUVIR [Suspect]
     Active Substance: LEDIPASVIR\SOFOSBUVIR
     Indication: HEPATIC CIRRHOSIS
  7. ESSENTIALE FORTE [Concomitant]
  8. PROPRANOLOL [Concomitant]
     Active Substance: PROPRANOLOL HYDROCHLORIDE
  9. TARDYFERON [Concomitant]
     Active Substance: FERROUS SULFATE
  10. VEROSPIRON [Concomitant]
     Active Substance: SPIRONOLACTONE
  11. FUROSEMIDE. [Concomitant]
     Active Substance: FUROSEMIDE

REACTIONS (8)
  - Haematemesis [Recovering/Resolving]
  - Anaemia [Recovering/Resolving]
  - Melaena [Recovering/Resolving]
  - Fall [Unknown]
  - Limb injury [Recovered/Resolved]
  - Upper gastrointestinal haemorrhage [Unknown]
  - Head injury [Recovered/Resolved]
  - Oesophageal varices haemorrhage [Recovered/Resolved]

NARRATIVE: CASE EVENT DATE: 201903
